FAERS Safety Report 4389403-1 (Version None)
Quarter: 2004Q3

REPORT INFORMATION
  Report Type: 
  Country: None (occurrence: None)
  Receive Date: 20040702
  Receipt Date: 20040603
  Transmission Date: 20050211
  Serious: Yes (Hospitalization)
  Sender: FDA-Public Use
  Company Number: JP-MERCK-0406USA00385

PATIENT
  Age: 38 Year
  Sex: Female
  Weight: 43 kg

DRUGS (5)
  1. FOSAMAX [Suspect]
     Indication: OSTEOPOROSIS
     Route: 048
     Dates: start: 20040428, end: 20040603
  2. PEPCID [Concomitant]
     Route: 048
     Dates: start: 20040428, end: 20040519
  3. LOXOPROFEN SODIUM [Concomitant]
     Route: 065
     Dates: start: 20040501, end: 20040514
  4. REBAMIPIDE [Concomitant]
     Route: 048
     Dates: start: 20040501, end: 20040519
  5. SULFAMETHOXAZOLE AND TRIMETHOPRIM [Suspect]
     Indication: INFECTION PROPHYLAXIS
     Route: 048
     Dates: start: 20040428, end: 20040529

REACTIONS (8)
  - ALANINE AMINOTRANSFERASE INCREASED [None]
  - ASPARTATE AMINOTRANSFERASE INCREASED [None]
  - BLOOD ALKALINE PHOSPHATASE INCREASED [None]
  - BLOOD CREATINE DECREASED [None]
  - BLOOD LACTATE DEHYDROGENASE INCREASED [None]
  - CREATINE PHOSPHOKINASE DECREASED [None]
  - GAMMA-GLUTAMYLTRANSFERASE INCREASED [None]
  - HEPATIC FUNCTION ABNORMAL [None]
